FAERS Safety Report 7742547-6 (Version None)
Quarter: 2011Q3

REPORT INFORMATION
  Report Type: 
  Country: None (occurrence: None)
  Receive Date: 20110912
  Receipt Date: 20110831
  Transmission Date: 20111222
  Serious: Yes (Death)
  Sender: FDA-Public Use
  Company Number: JP-PFIZER INC-2011210884

PATIENT
  Age: 52 Year
  Sex: Male
  Weight: 68 kg

DRUGS (7)
  1. EFUDEX [Concomitant]
     Dosage: 3000 MG/BODY/D1-2 (1734.1 MG/M2/D1-2)
     Route: 041
     Dates: start: 20100803, end: 20110118
  2. CALCIUM LEVOFOLINATE [Concomitant]
     Indication: COLORECTAL CANCER
     Dosage: 300 MG, BODY (173.4 MG/M2)
     Route: 041
     Dates: start: 20100601, end: 20110118
  3. EFUDEX [Concomitant]
     Dosage: 3600 MG/BODY/D1-2 (2080.9 MG/M2/D1-2)
     Route: 041
     Dates: start: 20100601, end: 20100629
  4. EFUDEX [Concomitant]
     Indication: COLORECTAL CANCER
     Dosage: 600MG/BODY (346.8 MG/M2)
     Route: 040
     Dates: start: 20100601, end: 20100629
  5. EFUDEX [Concomitant]
     Dosage: 400 MG/BODY (231.2 MG/M2)
     Route: 040
     Dates: start: 20100803, end: 20110118
  6. BEVACIZUMAB [Concomitant]
     Indication: COLORECTAL CANCER
     Dosage: 300 MG, UNK
     Route: 041
     Dates: start: 20100601, end: 20110118
  7. CAMPTOSAR [Suspect]
     Indication: COLORECTAL CANCER
     Dosage: 90 MG/BODY (52 MG/M2)
     Route: 041
     Dates: start: 20100601, end: 20110118

REACTIONS (2)
  - PYREXIA [None]
  - ABDOMINAL PAIN [None]
